FAERS Safety Report 5454054-4 (Version None)
Quarter: 2007Q3

REPORT INFORMATION
  Report Type: 
  Country: None (occurrence: None)
  Receive Date: 20070917
  Receipt Date: 20070709
  Transmission Date: 20080115
  Serious: Yes (Other)
  Sender: FDA-Public Use
  Company Number: US-ASTRAZENECA-2006UW05329

PATIENT
  Age: 29 Year
  Sex: Female

DRUGS (7)
  1. SEROQUEL [Suspect]
     Indication: BIPOLAR DISORDER
     Route: 048
     Dates: start: 20040701, end: 20060101
  2. SEROQUEL [Suspect]
     Indication: DEPRESSION
     Route: 048
     Dates: start: 20040701, end: 20060101
  3. ZYPREXA [Concomitant]
     Indication: BIPOLAR DISORDER
     Dates: start: 20040601, end: 20050601
  4. ZYPREXA [Concomitant]
     Indication: DEPRESSION
     Dates: start: 20040601, end: 20050601
  5. ZYPREXA [Concomitant]
     Indication: SLEEP DISORDER
     Dates: start: 20040601, end: 20050601
  6. RISPERDAL [Concomitant]
     Indication: BIPOLAR DISORDER
     Dates: start: 20021001, end: 20030801
  7. RISPERDAL [Concomitant]
     Indication: DEPRESSION
     Dates: start: 20021001, end: 20030801

REACTIONS (2)
  - DIABETES MELLITUS [None]
  - PANCREATITIS [None]
